FAERS Safety Report 26096386 (Version 1)
Quarter: 2025Q4

REPORT INFORMATION
  Report Type: Spontaneous
  Country: US (occurrence: US)
  Receive Date: 20251127
  Receipt Date: 20251127
  Transmission Date: 20260118
  Serious: Yes (Other)
  Sender: ROCHE
  Company Number: US-ROCHE-10000445961

PATIENT
  Sex: Female

DRUGS (1)
  1. XOLAIR [Suspect]
     Active Substance: OMALIZUMAB
     Indication: Dermatitis atopic
     Dosage: STRENGTH:300MG/2MML
     Route: 058
     Dates: start: 202407

REACTIONS (2)
  - Anaphylactic reaction [Unknown]
  - Off label use [Unknown]
